FAERS Safety Report 25503807 (Version 1)
Quarter: 2025Q3

REPORT INFORMATION
  Report Type: Spontaneous
  Country: US (occurrence: None)
  Receive Date: 20250701
  Receipt Date: 20250701
  Transmission Date: 20251020
  Serious: Yes (Death)
  Sender: FDA-CTU
  Company Number: None

PATIENT
  Age: 90 Year
  Sex: Male

DRUGS (1)
  1. LENALIDOMIDE [Suspect]
     Active Substance: LENALIDOMIDE
     Indication: Myelodysplastic syndrome
     Dosage: 5MG QD ORAL
     Route: 048
     Dates: start: 20250418, end: 20250506

REACTIONS (5)
  - Generalised oedema [None]
  - Dyspnoea exertional [None]
  - Anaemia [None]
  - Hypotension [None]
  - Pulseless electrical activity [None]

NARRATIVE: CASE EVENT DATE: 20250506
